FAERS Safety Report 5723137-3 (Version None)
Quarter: 2008Q2

REPORT INFORMATION
  Report Type: 
  Country: None (occurrence: None)
  Receive Date: 20080423
  Receipt Date: 20071009
  Transmission Date: 20081010
  Serious: Yes (Life-Threatening, Hospitalization)
  Sender: FDA-Public Use
  Company Number: 247181

PATIENT
  Age: 53 Year
  Sex: Male

DRUGS (4)
  1. AVASTATIN(BEVACIZUMAB) POWDER AND SOLVENT FOR SOLUTION FOR INFUSION, 1 [Suspect]
     Indication: COLON CANCER
     Dosage: 400 MG, Q14D, INTRAVENOUS
     Route: 042
     Dates: start: 20070201, end: 20070725
  2. OXALIPLATIN [Concomitant]
  3. FLUOROURACIL [Concomitant]
  4. SYNTHROID [Concomitant]

REACTIONS (1)
  - LOWER GASTROINTESTINAL HAEMORRHAGE [None]
